FAERS Safety Report 4871426-7 (Version None)
Quarter: 2005Q4

REPORT INFORMATION
  Report Type: 
  Country: None (occurrence: None)
  Receive Date: 20051229
  Receipt Date: 20051221
  Transmission Date: 20060501
  Serious: Yes (Other)
  Sender: FDA-Public Use
  Company Number: 2005BI015317

PATIENT
  Age: 66 Year
  Sex: Female

DRUGS (18)
  1. AVONEX [Suspect]
     Indication: MULTIPLE SCLEROSIS
     Dosage: 7.5 UG; IM
     Route: 030
     Dates: start: 20021226, end: 20030101
  2. AVONEX [Suspect]
     Indication: MULTIPLE SCLEROSIS
     Dosage: IM
     Route: 030
     Dates: start: 20030101, end: 20050706
  3. SYNTHROID [Concomitant]
  4. ULTRAM [Concomitant]
  5. MAXZIDE [Concomitant]
  6. LEXAPRO [Concomitant]
  7. RHYTHMY [Concomitant]
  8. AVALIDE [Concomitant]
  9. XANAX [Concomitant]
  10. NEXIUM [Concomitant]
  11. VYTORIN [Concomitant]
  12. NORVASC [Concomitant]
  13. NAPRELAN [Concomitant]
  14. OSTEO BI-FLEX [Concomitant]
  15. NITROQUICK [Concomitant]
  16. B12 [Concomitant]
  17. BENICAL [Concomitant]
  18. TOPROL-XL [Concomitant]

REACTIONS (1)
  - NO ADVERSE EFFECT [None]
